FAERS Safety Report 12180147 (Version 1)
Quarter: 2016Q1

REPORT INFORMATION
  Report Type: Spontaneous
  Country: US (occurrence: US)
  Receive Date: 20160315
  Receipt Date: 20160315
  Transmission Date: 20160526
  Serious: No
  Sender: FDA-Public Use
  Company Number: US-PFIZER INC-2015062497

PATIENT
  Sex: Female

DRUGS (1)
  1. VFEND [Suspect]
     Active Substance: VORICONAZOLE
     Indication: EAR INFECTION
     Dosage: UNK

REACTIONS (3)
  - Agitation [Unknown]
  - Eye disorder [Unknown]
  - Product use issue [Unknown]
